FAERS Safety Report 19442324 (Version 1)
Quarter: 2021Q2

REPORT INFORMATION
  Report Type: Other
  Country: US (occurrence: US)
  Receive Date: 20210621
  Receipt Date: 20210621
  Transmission Date: 20210717
  Serious: No
  Sender: FDA-Public Use
  Company Number: US-ACORDA-ACO_168320_2021

PATIENT
  Sex: Male

DRUGS (3)
  1. RYTARY [Suspect]
     Active Substance: CARBIDOPA\LEVODOPA
     Indication: PRODUCT USED FOR UNKNOWN INDICATION
     Dosage: UNK
     Route: 065
  2. INBRIJA [Suspect]
     Active Substance: LEVODOPA
     Indication: PARKINSON^S DISEASE
     Dosage: 2 DOSAGE FORM, PRN (NOT TO EXCEED 5 DOSES A DAY)
     Dates: start: 20210318
  3. INBRIJA [Suspect]
     Active Substance: LEVODOPA
     Indication: ON AND OFF PHENOMENON

REACTIONS (11)
  - General physical health deterioration [Recovered/Resolved]
  - Tooth disorder [Unknown]
  - Drug effect less than expected [Unknown]
  - Mobility decreased [Unknown]
  - Cough [Not Recovered/Not Resolved]
  - Device difficult to use [Unknown]
  - Product residue present [Unknown]
  - Choking [Not Recovered/Not Resolved]
  - Delusion [Recovered/Resolved]
  - Device use issue [Unknown]
  - Hallucination, visual [Recovered/Resolved]
